FAERS Safety Report 25317034 (Version 1)
Quarter: 2025Q2

REPORT INFORMATION
  Report Type: Spontaneous
  Country: FI (occurrence: FI)
  Receive Date: 20250515
  Receipt Date: 20250515
  Transmission Date: 20250717
  Serious: Yes (Hospitalization, Other)
  Sender: CELLTRION
  Company Number: FI-ABBVIE-5989766

PATIENT

DRUGS (11)
  1. ADALIMUMAB [Suspect]
     Active Substance: ADALIMUMAB
     Indication: Product used for unknown indication
     Dosage: 40 MG, EVERY 14 DAYS
     Route: 058
     Dates: start: 202104
  2. ADALIMUMAB [Suspect]
     Active Substance: ADALIMUMAB
     Dosage: 40 MG, EVERY 7 DAYS
     Route: 058
     Dates: end: 2022
  3. USTEKINUMAB [Suspect]
     Active Substance: USTEKINUMAB
     Indication: Product used for unknown indication
     Dates: start: 202204
  4. USTEKINUMAB [Suspect]
     Active Substance: USTEKINUMAB
     Dates: start: 2023
  5. ENTOCORT [Concomitant]
     Active Substance: BUDESONIDE
     Indication: Product used for unknown indication
     Dates: start: 2021, end: 202108
  6. ENTOCORT [Concomitant]
     Active Substance: BUDESONIDE
     Dates: start: 202108
  7. PREDNISOLONE [Concomitant]
     Active Substance: PREDNISOLONE
     Indication: Product used for unknown indication
  8. AZATHIOPRINE SODIUM [Concomitant]
     Active Substance: AZATHIOPRINE SODIUM
     Indication: Product used for unknown indication
     Dates: start: 202209
  9. AZATHIOPRINE SODIUM [Concomitant]
     Active Substance: AZATHIOPRINE SODIUM
     Dates: start: 202012, end: 202108
  10. AZATHIOPRINE SODIUM [Concomitant]
     Active Substance: AZATHIOPRINE SODIUM
     Dates: start: 202108, end: 202209
  11. VEDOLIZUMAB [Concomitant]
     Active Substance: VEDOLIZUMAB
     Indication: Product used for unknown indication
     Dates: start: 2023

REACTIONS (13)
  - Enteritis [Unknown]
  - Intestinal obstruction [Unknown]
  - Dyschezia [Unknown]
  - Intestinal obstruction [Recovered/Resolved]
  - Blood albumin decreased [Unknown]
  - Feeding disorder [Recovered/Resolved]
  - Faecal calprotectin abnormal [Unknown]
  - Cytopenia [Unknown]
  - Faecal calprotectin abnormal [Unknown]
  - Malaise [Unknown]
  - Diarrhoea [Unknown]
  - Abdominal pain [Unknown]
  - Anaemia [Unknown]

NARRATIVE: CASE EVENT DATE: 20210101
